FAERS Safety Report 6212599-3 (Version None)
Quarter: 2009Q2

REPORT INFORMATION
  Report Type: 
  Country: None (occurrence: None)
  Receive Date: 20090602
  Receipt Date: 20090602
  Transmission Date: 20091009
  Serious: No
  Sender: FDA-Public Use
  Company Number: None

PATIENT
  Age: 63 Year
  Sex: Female
  Weight: 70.3 kg

DRUGS (1)
  1. VIGAMOX [Suspect]
     Indication: PREOPERATIVE CARE
     Dosage: 1 QTT OD X 2 DOSES RIGHT EYE
     Route: 047
     Dates: start: 20090526

REACTIONS (1)
  - HEART RATE INCREASED [None]
